FAERS Safety Report 5600460-4 (Version None)
Quarter: 2008Q1

REPORT INFORMATION
  Report Type: 
  Country: None (occurrence: None)
  Receive Date: 20080118
  Receipt Date: 20050101
  Transmission Date: 20080703
  Serious: Yes (Hospitalization, Other)
  Sender: FDA-Public Use
  Company Number: 2008SP001044

PATIENT
  Age: 25 Year
  Sex: Female

DRUGS (2)
  1. PEG-INTRON [Suspect]
     Indication: HEPATITIS C
     Dosage: QW
     Dates: start: 20050101
  2. REBETOL [Suspect]
     Indication: HEPATITIS
     Dosage: PO
     Route: 048
     Dates: start: 20050101

REACTIONS (10)
  - ABDOMINAL DISTENSION [None]
  - FATIGUE [None]
  - HOT FLUSH [None]
  - INFLUENZA LIKE ILLNESS [None]
  - NAUSEA [None]
  - PARACENTESIS ABDOMEN [None]
  - PYREXIA [None]
  - RENAL STONE REMOVAL [None]
  - VOMITING [None]
  - YELLOW SKIN [None]
